FAERS Safety Report 6699997-9 (Version None)
Quarter: 2010Q2

REPORT INFORMATION
  Report Type: 
  Country: None (occurrence: None)
  Receive Date: 20100428
  Receipt Date: 20100423
  Transmission Date: 20101027
  Serious: Yes (Death, Hospitalization)
  Sender: FDA-Public Use
  Company Number: PHHY2009FR51784

PATIENT
  Sex: Female

DRUGS (1)
  1. ACLASTA [Suspect]
     Dosage: UNK

REACTIONS (5)
  - CARDIAC FAILURE [None]
  - DEATH [None]
  - DEHYDRATION [None]
  - HYPERCALCAEMIA [None]
  - POLYURIA [None]
